FAERS Safety Report 8534176-1 (Version None)
Quarter: 2012Q3

REPORT INFORMATION
  Report Type: 
  Country: None (occurrence: None)
  Receive Date: 20120724
  Receipt Date: 20120712
  Transmission Date: 20120928
  Serious: Yes (Death, Hospitalization)
  Sender: FDA-Public Use
  Company Number: US-ACTELION-A-NJ2012-67744

PATIENT

DRUGS (1)
  1. TRACLEER [Suspect]
     Indication: PULMONARY ARTERIAL HYPERTENSION
     Dosage: UNK
     Route: 048
     Dates: end: 20120620

REACTIONS (8)
  - RENAL FAILURE ACUTE [None]
  - URINARY TRACT INFECTION [None]
  - SEPSIS [None]
  - METABOLIC ENCEPHALOPATHY [None]
  - PNEUMONIA [None]
  - ACUTE RESPIRATORY FAILURE [None]
  - SEPTIC SHOCK [None]
  - DECUBITUS ULCER [None]
